FAERS Safety Report 14691286 (Version 1)
Quarter: 2018Q1

REPORT INFORMATION
  Report Type: Spontaneous
  Country: US (occurrence: US)
  Receive Date: 20180327
  Receipt Date: 20180327
  Transmission Date: 20180509
  Serious: No
  Sender: FDA-Public Use
  Company Number: None

PATIENT
  Age: 45 Year
  Sex: Female

DRUGS (1)
  1. STELARA [Suspect]
     Active Substance: USTEKINUMAB
     Indication: CROHN^S DISEASE
     Dosage: 90MG Q8WEEKS SQ
     Route: 058
     Dates: start: 20180208

REACTIONS (3)
  - Headache [None]
  - Vision blurred [None]
  - Ocular discomfort [None]

NARRATIVE: CASE EVENT DATE: 20180224
